FAERS Safety Report 4592810-5 (Version None)
Quarter: 2005Q1

REPORT INFORMATION
  Report Type: 
  Country: None (occurrence: None)
  Receive Date: 20050228
  Receipt Date: 20041215
  Transmission Date: 20050727
  Serious: Yes (Hospitalization)
  Sender: FDA-Public Use
  Company Number: JP-BRISTOL-MYERS SQUIBB COMPANY-12803961

PATIENT
  Age: 48 Year
  Sex: Male

DRUGS (5)
  1. STOCRIN CAPS [Suspect]
     Indication: HIV INFECTION
     Route: 048
     Dates: start: 20010403
  2. ZIAGEN [Concomitant]
     Dates: start: 20010403
  3. BENAMBAX [Concomitant]
     Dates: end: 20020110
  4. NORVIR [Concomitant]
     Dates: start: 20010403
  5. INVIRASE [Concomitant]
     Dates: start: 20011010, end: 20020331

REACTIONS (1)
  - MYOCARDIAL INFARCTION [None]
